FAERS Safety Report 6067500-2 (Version None)
Quarter: 2009Q1

REPORT INFORMATION
  Report Type: 
  Country: None (occurrence: None)
  Receive Date: 20090205
  Receipt Date: 20090202
  Transmission Date: 20090719
  Serious: Yes (Life-Threatening, Hospitalization)
  Sender: FDA-Public Use
  Company Number: US-ASTRAZENECA-2009UW03023

PATIENT
  Age: 65 Year
  Sex: Male

DRUGS (4)
  1. SEROQUEL [Suspect]
     Route: 048
  2. ANASTHESIA [Suspect]
     Indication: SURGERY
  3. NEXIUM [Concomitant]
     Route: 048
  4. FLOMAX [Concomitant]

REACTIONS (2)
  - CATATONIA [None]
  - CEREBROVASCULAR ACCIDENT [None]
